FAERS Safety Report 13578993 (Version 1)
Quarter: 2017Q2

REPORT INFORMATION
  Report Type: Report from Study
  Country: None (occurrence: IT)
  Receive Date: 20170524
  Receipt Date: 20170524
  Transmission Date: 20170830
  Serious: Yes (Death)
  Sender: FDA-Public Use
  Company Number: IT-ABBVIE-17K-083-1984719-00

PATIENT
  Sex: Female
  Weight: 45 kg

DRUGS (1)
  1. DUODOPA [Suspect]
     Active Substance: CARBIDOPA\LEVODOPA
     Indication: PARKINSON^S DISEASE
     Dosage: MD 0+3 CR 1,5 ED 3,5
     Route: 050
     Dates: start: 20140102, end: 20170519

REACTIONS (1)
  - Pneumonia [Fatal]
